FAERS Safety Report 19267230 (Version 2)
Quarter: 2021Q3

REPORT INFORMATION
  Report Type: Report from Study
  Country: None (occurrence: US)
  Receive Date: 20210518
  Receipt Date: 20210709
  Transmission Date: 20211014
  Serious: Yes (Other)
  Sender: FDA-Public Use
  Company Number: US-ABBVIE-21K-163-3906040-00

PATIENT
  Sex: Male
  Weight: 145.28 kg

DRUGS (3)
  1. MESALAMINE. [Concomitant]
     Active Substance: MESALAMINE
     Indication: COLITIS ULCERATIVE
  2. HUMIRA [Suspect]
     Active Substance: ADALIMUMAB
     Indication: COLITIS ULCERATIVE
     Route: 058
     Dates: start: 202002
  3. PRILOSEC [Concomitant]
     Active Substance: OMEPRAZOLE MAGNESIUM
     Indication: HYPERCHLORHYDRIA

REACTIONS (3)
  - Benign neoplasm [Recovered/Resolved]
  - Seasonal allergy [Not Recovered/Not Resolved]
  - Mycotic allergy [Not Recovered/Not Resolved]

NARRATIVE: CASE EVENT DATE: 2020
